FAERS Safety Report 18844115 (Version 1)
Quarter: 2021Q1

REPORT INFORMATION
  Report Type: Report from Study
  Country: US (occurrence: US)
  Receive Date: 20210203
  Receipt Date: 20210203
  Transmission Date: 20210419
  Serious: No
  Sender: FDA-Public Use
  Company Number: US-EXELIXIS-CABO-20029015

PATIENT
  Sex: Male
  Weight: 62.59 kg

DRUGS (8)
  1. LENVIMA [Suspect]
     Active Substance: LENVATINIB
     Indication: HEPATOCELLULAR CARCINOMA
     Dosage: UNK
     Dates: start: 20191121
  2. VITAMIN E [Concomitant]
     Active Substance: .ALPHA.-TOCOPHEROL
     Dosage: UNK
  3. MULTIVITAMIN [Concomitant]
     Active Substance: VITAMINS
     Dosage: UNK
  4. CABOMETYX [Suspect]
     Active Substance: CABOZANTINIB S-MALATE
     Indication: HEPATOCELLULAR CARCINOMA
     Dosage: 20 MG, QD
     Route: 048
  5. ASPIRIN. [Concomitant]
     Active Substance: ASPIRIN
     Dosage: UNK
  6. COMPLERA [Concomitant]
     Active Substance: EMTRICITABINE\RILPIVIRINE HYDROCHLORIDE\TENOFOVIR DISOPROXIL FUMARATE
     Dosage: UNK
  7. MILK THISTLE [Concomitant]
     Active Substance: DIETARY SUPPLEMENT\HERBALS\MILK THISTLE
     Dosage: UNK
  8. VITAMIN C [Concomitant]
     Active Substance: ASCORBIC ACID
     Dosage: UNK

REACTIONS (4)
  - Decreased appetite [Unknown]
  - Hiccups [Unknown]
  - Constipation [Unknown]
  - Nausea [Unknown]
